FAERS Safety Report 16285070 (Version 1)
Quarter: 2019Q2

REPORT INFORMATION
  Report Type: Spontaneous
  Country: US (occurrence: US)
  Receive Date: 20190508
  Receipt Date: 20190508
  Transmission Date: 20190711
  Serious: Yes (Other)
  Sender: FDA-Public Use
  Company Number: US-DRREDDYS-USA/USA/19/0110061

PATIENT
  Age: 5 Year
  Sex: Female

DRUGS (12)
  1. CYCLOPHOSPHAMIDE. [Suspect]
     Active Substance: CYCLOPHOSPHAMIDE
     Indication: CEREBELLAR TUMOUR
  2. ETOPOSIDE. [Suspect]
     Active Substance: ETOPOSIDE
     Indication: CEREBELLAR TUMOUR
  3. CISPLATIN. [Suspect]
     Active Substance: CISPLATIN
     Indication: METASTASES TO SPINE
  4. CYCLOPHOSPHAMIDE. [Suspect]
     Active Substance: CYCLOPHOSPHAMIDE
     Indication: METASTASES TO SPINE
  5. METHOTREXATE. [Suspect]
     Active Substance: METHOTREXATE
     Indication: CEREBELLAR TUMOUR
  6. VINCRISTINE [Suspect]
     Active Substance: VINCRISTINE
     Indication: CEREBELLAR TUMOUR
  7. CISPLATIN. [Suspect]
     Active Substance: CISPLATIN
     Indication: CEREBELLAR TUMOUR
  8. ETOPOSIDE. [Suspect]
     Active Substance: ETOPOSIDE
     Indication: METASTASES TO SPINE
  9. METHOTREXATE. [Suspect]
     Active Substance: METHOTREXATE
     Indication: METASTASES TO SPINE
  10. THIOTEPA FOR INJECTION USP 15 MG [Suspect]
     Active Substance: THIOTEPA
     Indication: CEREBELLAR TUMOUR
     Route: 065
  11. VINCRISTINE [Suspect]
     Active Substance: VINCRISTINE
     Indication: METASTASES TO SPINE
  12. THIOTEPA FOR INJECTION USP 15 MG [Suspect]
     Active Substance: THIOTEPA
     Indication: METASTASES TO SPINE

REACTIONS (3)
  - Legionella infection [Unknown]
  - Venoocclusive liver disease [Unknown]
  - Sepsis [Unknown]
